FAERS Safety Report 6711299-0 (Version None)
Quarter: 2010Q2

REPORT INFORMATION
  Report Type: 
  Country: None (occurrence: None)
  Receive Date: 20100505
  Receipt Date: 20100426
  Transmission Date: 20101027
  Serious: Yes (Other)
  Sender: FDA-Public Use
  Company Number: US-SANOFI-AVENTIS-2010SA024057

PATIENT
  Age: 72 Year
  Sex: Male

DRUGS (5)
  1. MULTAQ [Suspect]
     Route: 048
     Dates: start: 20100401
  2. LOVASTATIN [Suspect]
     Route: 065
     Dates: end: 20100401
  3. VALSARTAN [Suspect]
     Route: 065
     Dates: end: 20100401
  4. METOPROLOL [Concomitant]
  5. COUMADIN [Concomitant]

REACTIONS (4)
  - DYSPNOEA [None]
  - HALLUCINATION [None]
  - INSOMNIA [None]
  - WHEEZING [None]
